FAERS Safety Report 18483111 (Version 1)
Quarter: 2020Q4

REPORT INFORMATION
  Report Type: Spontaneous
  Country: GB (occurrence: GB)
  Receive Date: 20201110
  Receipt Date: 20201110
  Transmission Date: 20210114
  Serious: Yes (Other)
  Sender: FDA-Public Use
  Company Number: GB-AMGEN-GBRSP2020179948

PATIENT
  Age: 70 Year
  Sex: Female
  Weight: 73.5 kg

DRUGS (5)
  1. VAGIFEM [Concomitant]
     Active Substance: ESTRADIOL
  2. OMEPRAZOLE. [Concomitant]
     Active Substance: OMEPRAZOLE
  3. PROLIA [Suspect]
     Active Substance: DENOSUMAB
     Indication: OSTEOPOROSIS
     Dosage: 60 MILLIGRAM
     Route: 058
     Dates: start: 201909, end: 202010
  4. CALFOVIT D3 [Concomitant]
     Active Substance: CALCIUM PHOSPHATE\CHOLECALCIFEROL
  5. CODEINE PHOSPHATE [Concomitant]
     Active Substance: CODEINE PHOSPHATE

REACTIONS (2)
  - Musculoskeletal disorder [Unknown]
  - Thrombocytopenia [Not Recovered/Not Resolved]

NARRATIVE: CASE EVENT DATE: 202003
